FAERS Safety Report 9082469 (Version 1)
Quarter: 2013Q1

REPORT INFORMATION
  Report Type: Spontaneous
  Country: US (occurrence: US)
  Receive Date: 20130218
  Receipt Date: 20130218
  Transmission Date: 20140127
  Serious: No
  Sender: FDA-Public Use
  Company Number: US-PFIZER INC-2013061628

PATIENT
  Age: 41 Year
  Sex: Female
  Weight: 159 kg

DRUGS (6)
  1. CHANTIX [Suspect]
     Indication: SMOKING CESSATION THERAPY
     Dosage: UNK
     Route: 048
     Dates: start: 2011
  2. CHANTIX [Suspect]
     Dosage: UNK
     Route: 048
     Dates: start: 2012, end: 2013
  3. LYRICA [Concomitant]
     Indication: FIBROMYALGIA
     Dosage: 200 MG, 2X/DAY
  4. PRILOSEC [Concomitant]
     Indication: GASTROOESOPHAGEAL REFLUX DISEASE
     Dosage: 20 MG, DAILY
  5. ROBAXIN [Concomitant]
     Indication: BACK PAIN
     Dosage: 350 MG, AS NEEDED
  6. CLARITIN [Concomitant]
     Indication: SINUS DISORDER
     Dosage: 10 MG, 1X/DAY

REACTIONS (5)
  - Irritable bowel syndrome [Unknown]
  - Gastroenteritis [Unknown]
  - Abdominal pain upper [Unknown]
  - Pre-existing condition improved [Unknown]
  - Therapeutic response unexpected [Unknown]
